FAERS Safety Report 6550855-X (Version None)
Quarter: 2010Q1

REPORT INFORMATION
  Report Type: 
  Country: None (occurrence: None)
  Receive Date: 20100122
  Receipt Date: 20100122
  Transmission Date: 20100710
  Serious: Yes (Hospitalization)
  Sender: FDA-Public Use
  Company Number: None

PATIENT
  Age: 82 Year
  Sex: Male
  Weight: 88.3 kg

DRUGS (1)
  1. GLIPIZIDE [Suspect]
     Indication: TYPE 2 DIABETES MELLITUS
     Dosage: 2.5 MG EVERY DAY PO
     Route: 048
     Dates: start: 20031203, end: 20100112

REACTIONS (2)
  - HYPOPHAGIA [None]
  - MENTAL STATUS CHANGES [None]
